FAERS Safety Report 6540172-6 (Version None)
Quarter: 2010Q1

REPORT INFORMATION
  Report Type: 
  Country: None (occurrence: None)
  Receive Date: 20100115
  Receipt Date: 20100113
  Transmission Date: 20100710
  Serious: Yes (Hospitalization)
  Sender: FDA-Public Use
  Company Number: US-B.I. PHARMACEUTICALS,INC./RIDGEFIELD-2010-BP-00484BP

PATIENT
  Sex: Female

DRUGS (2)
  1. SPIRIVA [Suspect]
  2. COMBIVENT [Concomitant]

REACTIONS (3)
  - INCORRECT ROUTE OF DRUG ADMINISTRATION [None]
  - NAUSEA [None]
  - PSYCHIATRIC SYMPTOM [None]
